FAERS Safety Report 8373250-X (Version None)
Quarter: 2012Q2

REPORT INFORMATION
  Report Type: 
  Country: None (occurrence: None)
  Receive Date: 20120521
  Receipt Date: 20120511
  Transmission Date: 20120825
  Serious: Yes (Other)
  Sender: FDA-Public Use
  Company Number: US-ASTRAZENECA-2012SE20199

PATIENT
  Age: 88 Year
  Sex: Female
  Weight: 56.7 kg

DRUGS (7)
  1. LEVOTHYROXINE SODIUM [Concomitant]
     Indication: THYROID THERAPY
  2. SIMVASTATIN [Concomitant]
  3. LEVOFLOXACIN [Concomitant]
     Indication: ANTIBIOTIC THERAPY
  4. METOPROLOL [Concomitant]
  5. SYMBICORT [Suspect]
     Indication: BRONCHIECTASIS
     Dosage: 160/4.5, ONLY USED 3 TO 4 TIMES
     Route: 055
     Dates: start: 20120301, end: 20120301
  6. SYMBICORT [Suspect]
     Indication: NASOPHARYNGITIS
     Dosage: 160/4.5, ONLY USED 3 TO 4 TIMES
     Route: 055
     Dates: start: 20120301, end: 20120301
  7. SYMBICORT [Suspect]
     Indication: DYSPNOEA
     Dosage: 160/4.5, ONLY USED 3 TO 4 TIMES
     Route: 055
     Dates: start: 20120301, end: 20120301

REACTIONS (1)
  - CATARACT [None]
